FAERS Safety Report 7524174-9 (Version None)
Quarter: 2011Q2

REPORT INFORMATION
  Report Type: 
  Country: None (occurrence: None)
  Receive Date: 20110606
  Receipt Date: 20110531
  Transmission Date: 20111010
  Serious: No
  Sender: FDA-Public Use
  Company Number: US-BIOGENIDEC-2011BI014427

PATIENT
  Age: 61 Year
  Sex: Female

DRUGS (1)
  1. TYSABRI [Suspect]
     Indication: MULTIPLE SCLEROSIS
     Route: 042
     Dates: start: 20090630

REACTIONS (7)
  - LIP INJURY [None]
  - SPEECH DISORDER [None]
  - FALL [None]
  - LIP PAIN [None]
  - BACK PAIN [None]
  - VISUAL IMPAIRMENT [None]
  - GAIT DISTURBANCE [None]
